FAERS Safety Report 15428217 (Version 2)
Quarter: 2018Q4

REPORT INFORMATION
  Report Type: Report from Study
  Country: JP (occurrence: JP)
  Receive Date: 20180926
  Receipt Date: 20181116
  Transmission Date: 20190204
  Serious: Yes (Hospitalization)
  Sender: FDA-Public Use
  Company Number: JP-BIOGEN-2017BI00497707

PATIENT
  Age: 5 Month
  Sex: Male
  Weight: 7 kg

DRUGS (15)
  1. SPINRAZA [Suspect]
     Active Substance: NUSINERSEN
     Indication: SPINAL MUSCULAR ATROPHY
     Route: 037
     Dates: start: 20171205, end: 20171205
  2. EMLA [Concomitant]
     Active Substance: LIDOCAINE\PRILOCAINE
     Dosage: REASONABLE AMOUNT
     Route: 062
     Dates: start: 20180605, end: 20180605
  3. PROCATEROL HYDROCHLORIDE HYDRATE [Concomitant]
     Indication: BRONCHITIS CHRONIC
     Route: 048
     Dates: start: 20171208, end: 20171213
  4. SCOPOLIA EXTRACT [Concomitant]
     Indication: SALIVARY HYPERSECRETION
     Dosage: 6MG-12MG
     Route: 048
     Dates: start: 20171220
  5. SPINRAZA [Suspect]
     Active Substance: NUSINERSEN
     Route: 037
     Dates: start: 20180605, end: 20180605
  6. EMLA [Concomitant]
     Active Substance: LIDOCAINE\PRILOCAINE
     Indication: ANAESTHESIA PROCEDURE
     Dosage: REASONABLE AMOUNT
     Route: 062
     Dates: start: 20171205, end: 20171205
  7. EMLA [Concomitant]
     Active Substance: LIDOCAINE\PRILOCAINE
     Dosage: REASONABLE AMOUNT
     Route: 062
     Dates: start: 20180104, end: 20180104
  8. CARBOCISTEINE [Concomitant]
     Active Substance: CARBOCYSTEINE
     Indication: BRONCHITIS CHRONIC
     Dosage: 4-5ML
     Route: 048
  9. VENETLIN [Concomitant]
     Active Substance: ALBUTEROL SULFATE
     Indication: PNEUMONIA
     Route: 055
     Dates: start: 20171209
  10. SPINRAZA [Suspect]
     Active Substance: NUSINERSEN
     Route: 037
     Dates: start: 20180206, end: 20180206
  11. ISOZOL [Concomitant]
     Active Substance: THIAMYLAL SODIUM
     Indication: ANAESTHESIA PROCEDURE
     Route: 050
     Dates: start: 20180206, end: 20180206
  12. SPINRAZA [Suspect]
     Active Substance: NUSINERSEN
     Route: 037
     Dates: start: 20171219, end: 20171219
  13. SPINRAZA [Suspect]
     Active Substance: NUSINERSEN
     Route: 037
     Dates: start: 20180104, end: 20180104
  14. EMLA [Concomitant]
     Active Substance: LIDOCAINE\PRILOCAINE
     Dosage: REASONABLE AMOUNT
     Route: 062
     Dates: start: 20171219, end: 20171219
  15. EMLA [Concomitant]
     Active Substance: LIDOCAINE\PRILOCAINE
     Dosage: REASONABLE AMOUNT
     Route: 062
     Dates: start: 20180206, end: 20180206

REACTIONS (4)
  - Pneumonia aspiration [Recovered/Resolved]
  - Pneumonia [Recovered/Resolved]
  - Sputum retention [Recovered/Resolved]
  - Atelectasis [Unknown]

NARRATIVE: CASE EVENT DATE: 20171208
